FAERS Safety Report 5197675-9 (Version None)
Quarter: 2006Q4

REPORT INFORMATION
  Report Type: 
  Country: None (occurrence: None)
  Receive Date: 20061227
  Receipt Date: 20061211
  Transmission Date: 20070319
  Serious: Yes (Hospitalization)
  Sender: FDA-Public Use
  Company Number: 2006145269

PATIENT
  Age: 75 Year
  Sex: Male
  Weight: 81.8 kg

DRUGS (7)
  1. SU-011,248 (SUNITINIB MALATE) [Suspect]
     Indication: CLEAR CELL CARCINOMA OF THE KIDNEY
     Dosage: 50 MG (50 MG, 1 IN 1 D), ORAL
     Route: 048
     Dates: start: 20061117
  2. LEVOTHYROXINE SODIUM [Concomitant]
  3. GLYBURIDE [Concomitant]
  4. NEURONTIN [Concomitant]
  5. PREDNISONE TAB [Concomitant]
  6. RANITIDINE [Concomitant]
  7. GLICLAZIDE (GLICLAZIDE) [Concomitant]

REACTIONS (9)
  - ADRENAL INSUFFICIENCY [None]
  - BLOOD CULTURE POSITIVE [None]
  - GENERAL PHYSICAL HEALTH DETERIORATION [None]
  - HYPOKALAEMIA [None]
  - KLEBSIELLA INFECTION [None]
  - METASTASES TO CENTRAL NERVOUS SYSTEM [None]
  - SEPSIS [None]
  - SOMNOLENCE [None]
  - UNRESPONSIVE TO STIMULI [None]
